FAERS Safety Report 6431705-9 (Version None)
Quarter: 2009Q4

REPORT INFORMATION
  Report Type: 
  Country: None (occurrence: None)
  Receive Date: 20091103
  Receipt Date: 20091019
  Transmission Date: 20100525
  Serious: Yes (Hospitalization)
  Sender: FDA-Public Use
  Company Number: 02100-JPN-05-0209

PATIENT
  Age: 77 Year
  Sex: Female
  Weight: 61.3 kg

DRUGS (7)
  1. PLETAL [Suspect]
     Indication: CEREBRAL INFARCTION
     Dosage: 100 MG, BID
     Route: 048
     Dates: start: 20050427, end: 20060303
  2. MEBALOTIN (PRAVASTATIN SODIUM) TABLET [Concomitant]
  3. NAUZELIN (DOMPERIDONE) TABLET [Concomitant]
  4. ASPARA-CA (ASPARTATE CALCIUM) TABLET [Concomitant]
  5. BUP-4 (PROPIVERINE HYDROCHLORIDE) TABLET [Concomitant]
  6. NORVASK (AMLODIPINE) TABLET [Concomitant]
  7. PLATIBIT (ALFACALCIDOL) [Concomitant]

REACTIONS (6)
  - BURNS THIRD DEGREE [None]
  - CHEST DISCOMFORT [None]
  - ELECTROCARDIOGRAM QT PROLONGED [None]
  - LEFT VENTRICULAR HYPERTROPHY [None]
  - NASOPHARYNGITIS [None]
  - SINUS TACHYCARDIA [None]
